FAERS Safety Report 15012047 (Version 1)
Quarter: 2018Q2

REPORT INFORMATION
  Report Type: Spontaneous
  Country: ES (occurrence: ES)
  Receive Date: 20180614
  Receipt Date: 20180614
  Transmission Date: 20180711
  Serious: Yes (Hospitalization, Other)
  Sender: FDA-Public Use
  Company Number: PHHY2018ES020428

PATIENT
  Age: 73 Year
  Sex: Female

DRUGS (4)
  1. LIDOCAINE. [Concomitant]
     Active Substance: LIDOCAINE
     Indication: PRODUCT USED FOR UNKNOWN INDICATION
     Route: 065
  2. BETADINE [Concomitant]
     Active Substance: POVIDONE-IODINE
     Indication: PRODUCT USED FOR UNKNOWN INDICATION
     Route: 065
  3. EPINEPHRINE. [Concomitant]
     Active Substance: EPINEPHRINE
     Indication: EYE IRRIGATION
     Route: 047
  4. BSS PLUS [Suspect]
     Active Substance: CALCIUM CHLORIDE\DEXTROSE\MAGNESIUM CHLORIDE\OXIGLUTATIONE\POTASSIUM CHLORIDE\SODIUM BICARBONATE\SODIUM CHLORIDE\SODIUM PHOSPHATE\SODIUM PHOSPHATE, DIBASIC
     Indication: EYE IRRIGATION
     Dosage: UNK
     Route: 031
     Dates: start: 20180521

REACTIONS (6)
  - Toxic anterior segment syndrome [Unknown]
  - Cataract operation complication [Unknown]
  - Endophthalmitis [Recovered/Resolved]
  - Vitritis [Unknown]
  - Corneal oedema [Unknown]
  - Hypopyon [Unknown]

NARRATIVE: CASE EVENT DATE: 20180522
